FAERS Safety Report 6140499-6 (Version None)
Quarter: 2009Q1

REPORT INFORMATION
  Report Type: 
  Country: None (occurrence: None)
  Receive Date: 20090331
  Receipt Date: 20090319
  Transmission Date: 20090719
  Serious: Yes (Hospitalization)
  Sender: FDA-Public Use
  Company Number: US-2009-00092

PATIENT
  Age: 12 Year
  Sex: Male
  Weight: 40 kg

DRUGS (4)
  1. SUPRAX [Suspect]
     Dosage: 400MG/DAY X 5DAYS PRESCRIBED; DISPENSED AS CAPSULES (MANUFACTURER UNKNOWN)
  2. ACETAMINOPHEN [Concomitant]
  3. ARTESUNATE [Concomitant]
  4. AMODIAQUINE [Concomitant]

REACTIONS (10)
  - BODY TEMPERATURE DECREASED [None]
  - DYSKINESIA [None]
  - DYSPHAGIA [None]
  - GAZE PALSY [None]
  - HEART RATE INCREASED [None]
  - IDIOSYNCRATIC DRUG REACTION [None]
  - MASKED FACIES [None]
  - POSTURE ABNORMAL [None]
  - RESPIRATORY RATE INCREASED [None]
  - SPEECH DISORDER [None]
